FAERS Safety Report 20534141 (Version 1)
Quarter: 2022Q1

REPORT INFORMATION
  Report Type: Report from Study
  Country: CA (occurrence: CA)
  Receive Date: 20220301
  Receipt Date: 20220301
  Transmission Date: 20220423
  Serious: Yes (Death)
  Sender: FDA-Public Use
  Company Number: CA-ABBVIE-22K-028-4295432-00

PATIENT
  Age: 85 Year
  Sex: Male

DRUGS (7)
  1. VENETOCLAX [Suspect]
     Active Substance: VENETOCLAX
     Indication: Acute myeloid leukaemia
     Dosage: DURATION 7 DAYS
     Route: 048
     Dates: start: 20210322, end: 2021
  2. VENETOCLAX [Suspect]
     Active Substance: VENETOCLAX
     Dosage: DURATION 7 DAYS
     Route: 048
     Dates: start: 2021, end: 2021
  3. VENETOCLAX [Suspect]
     Active Substance: VENETOCLAX
     Dosage: DURATION 7 DAYS
     Route: 048
     Dates: start: 2021, end: 2021
  4. VENETOCLAX [Suspect]
     Active Substance: VENETOCLAX
     Dosage: DURATION 7 DAYS
     Route: 048
     Dates: start: 2021
  5. ATORVASTATIN [Concomitant]
     Active Substance: ATORVASTATIN
     Indication: Product used for unknown indication
  6. TAMSULOSIN [Concomitant]
     Active Substance: TAMSULOSIN
     Indication: Product used for unknown indication
  7. ZOPICLONE [Concomitant]
     Active Substance: ZOPICLONE
     Indication: Product used for unknown indication

REACTIONS (1)
  - Death [Fatal]

NARRATIVE: CASE EVENT DATE: 20210621
